FAERS Safety Report 6075993-X (Version None)
Quarter: 2009Q1

REPORT INFORMATION
  Report Type: 
  Country: None (occurrence: None)
  Receive Date: 20090212
  Receipt Date: 20090130
  Transmission Date: 20090719
  Serious: Yes (Hospitalization, Disabling)
  Sender: FDA-Public Use
  Company Number: AT-ASTRAZENECA-2008PK00840

PATIENT
  Age: 26878 Day
  Sex: Female
  Weight: 44.2 kg

DRUGS (2)
  1. ARIMIDEX [Suspect]
     Indication: BREAST CANCER
     Route: 048
     Dates: start: 20070124
  2. RAMICOMP [Concomitant]
     Indication: HYPERTENSION
     Route: 048

REACTIONS (4)
  - LUMBAR SPINAL STENOSIS [None]
  - OSTEOARTHRITIS [None]
  - SCIATICA [None]
  - SPINAL COMPRESSION FRACTURE [None]
